FAERS Safety Report 9229926 (Version 1)
Quarter: 2013Q2

REPORT INFORMATION
  Report Type: Spontaneous
  Country: US (occurrence: US)
  Receive Date: 20130415
  Receipt Date: 20130415
  Transmission Date: 20140414
  Serious: No
  Sender: FDA-Public Use
  Company Number: US-009507513-1304USA005046

PATIENT
  Age: 37 Year
  Sex: Female
  Weight: 82.54 kg

DRUGS (2)
  1. IMPLANON [Suspect]
     Dosage: UNK
     Route: 059
     Dates: start: 20130326, end: 20130326
  2. IMPLANON [Suspect]
     Dosage: UNK
     Route: 059
     Dates: start: 20130326

REACTIONS (2)
  - Complication of device insertion [Unknown]
  - No adverse event [Unknown]
